FAERS Safety Report 14455781 (Version 2)
Quarter: 2018Q1

REPORT INFORMATION
  Report Type: Spontaneous
  Country: DE (occurrence: DE)
  Receive Date: 20180130
  Receipt Date: 20180216
  Transmission Date: 20180509
  Serious: Yes (Other)
  Sender: FDA-Public Use
  Company Number: DE-CIPLA LTD.-2018DE01935

PATIENT

DRUGS (2)
  1. ELIQUIS [Concomitant]
     Active Substance: APIXABAN
     Indication: PRODUCT USED FOR UNKNOWN INDICATION
     Dosage: UNK
     Route: 065
  2. LEVETIRACETAM. [Suspect]
     Active Substance: LEVETIRACETAM
     Indication: EPILEPSY
     Dosage: UNK
     Route: 048
     Dates: start: 201705

REACTIONS (8)
  - Memory impairment [Unknown]
  - Red blood cell count decreased [Unknown]
  - Fatigue [Recovering/Resolving]
  - Autoimmune thyroiditis [Unknown]
  - Weight decreased [Unknown]
  - Asthenia [Unknown]
  - Pancreatitis [Unknown]
  - Dizziness [Unknown]

NARRATIVE: CASE EVENT DATE: 201706
